FAERS Safety Report 5290779-1 (Version None)
Quarter: 2007Q2

REPORT INFORMATION
  Report Type: 
  Country: None (occurrence: None)
  Receive Date: 20070409
  Receipt Date: 20070330
  Transmission Date: 20071010
  Serious: Yes (Hospitalization)
  Sender: FDA-Public Use
  Company Number: US-ROCHE-476731

PATIENT
  Age: 50 Year
  Sex: Male

DRUGS (3)
  1. PEGASYS [Suspect]
     Dosage: DOSAGE REGIMEN REPORTED AS 135 MCG
     Route: 065
     Dates: start: 20061117
  2. RIBAVIRIN [Suspect]
     Dosage: DOSAGE REGIMEN REPORTED AS 1200 MG/DAY
     Route: 065
     Dates: start: 20061117
  3. PROCRIT [Concomitant]
     Dosage: STRENGTH AND FORMULATION REPORTED AS INJECTION. INDICATION REPORTED AS RED BLOOD CELLS

REACTIONS (13)
  - ANGINA PECTORIS [None]
  - ASTHENIA [None]
  - BLOOD GLUCOSE INCREASED [None]
  - BLOOD TRIGLYCERIDES INCREASED [None]
  - CORONARY ARTERY OCCLUSION [None]
  - DECREASED APPETITE [None]
  - DIARRHOEA [None]
  - DYSGEUSIA [None]
  - FAECES PALE [None]
  - MUSCULOSKELETAL PAIN [None]
  - NAUSEA [None]
  - PLATELET COUNT DECREASED [None]
  - SKIN ODOUR ABNORMAL [None]
